FAERS Safety Report 8826325 (Version 2)
Quarter: 2012Q4

REPORT INFORMATION
  Report Type: 
  Country: AR (occurrence: AR)
  Receive Date: 20121005
  Receipt Date: 20121018
  Transmission Date: 20130627
  Serious: Yes (Death)
  Sender: FDA-Public Use
  Company Number: AR-BRISTOL-MYERS SQUIBB COMPANY-17022559

PATIENT
  Age: 3 Month
  Weight: 3 kg

DRUGS (4)
  1. ATAZANAVIR [Suspect]
     Indication: ANTIRETROVIRAL THERAPY
     Route: 064
     Dates: start: 20100701, end: 20110203
  2. RITONAVIR [Suspect]
     Indication: HIV INFECTION
     Route: 064
     Dates: start: 20100701
  3. LAMIVUDINE + ZIDOVUDINE [Suspect]
     Indication: HIV INFECTION
     Route: 048
     Dates: start: 20100701, end: 20110203
  4. LOPINAVIR + RITONAVIR [Suspect]
     Indication: HIV INFECTION
     Route: 064
     Dates: start: 20110203

REACTIONS (1)
  - Pertussis [Fatal]
